FAERS Safety Report 6163906-1 (Version None)
Quarter: 2009Q2

REPORT INFORMATION
  Report Type: 
  Country: None (occurrence: None)
  Receive Date: 20090422
  Receipt Date: 20090420
  Transmission Date: 20091009
  Serious: Yes (Disabling)
  Sender: FDA-Public Use
  Company Number: NZ-WYE-G03464809

PATIENT
  Age: 25 Year
  Sex: Female

DRUGS (7)
  1. VENLAFAXINE HYDROCHLORIDE [Suspect]
     Indication: MAJOR DEPRESSION
     Dosage: UNKNOWN
     Route: 048
     Dates: start: 20080101
  2. VENLAFAXINE HYDROCHLORIDE [Suspect]
     Dosage: OPENING ONE CAPSULE, DISCARDING A FRACTION OF CONTENT AND CLOSING
     Route: 048
     Dates: start: 20090101
  3. VENLAFAXINE HYDROCHLORIDE [Suspect]
     Dosage: FULL DOSE
     Dates: start: 20090101, end: 20090101
  4. VENLAFAXINE HYDROCHLORIDE [Suspect]
     Dosage: SLOW WITHDRAWAL
     Dates: start: 20090101
  5. ZINC [Concomitant]
     Route: 048
  6. PYRIDOXINE HYDROCHLORIDE [Concomitant]
     Route: 048
  7. LEVOTHYROXINE SODIUM [Concomitant]

REACTIONS (5)
  - DIZZINESS [None]
  - DRUG WITHDRAWAL SYNDROME [None]
  - INTENTIONAL DRUG MISUSE [None]
  - NAUSEA [None]
  - PARAESTHESIA [None]
